FAERS Safety Report 8210744-1 (Version None)
Quarter: 2012Q1

REPORT INFORMATION
  Report Type: 
  Country: None (occurrence: None)
  Receive Date: 20120315
  Receipt Date: 20120306
  Transmission Date: 20120608
  Serious: Yes (Hospitalization)
  Sender: FDA-Public Use
  Company Number: US-BIOGENIDEC-2012BI005086

PATIENT
  Age: 60 Year
  Sex: Female

DRUGS (2)
  1. TYSABRI [Suspect]
     Indication: MULTIPLE SCLEROSIS
     Route: 042
     Dates: start: 20061228, end: 20080124
  2. TYSABRI [Suspect]
     Route: 042
     Dates: start: 20100413

REACTIONS (2)
  - STAPHYLOCOCCAL SKIN INFECTION [None]
  - DRUG HYPERSENSITIVITY [None]
